FAERS Safety Report 20035039 (Version 9)
Quarter: 2023Q1

REPORT INFORMATION
  Report Type: Report from Study
  Country: DE (occurrence: DE)
  Receive Date: 20211104
  Receipt Date: 20230223
  Transmission Date: 20230417
  Serious: Yes (Other)
  Sender: FDA-Public Use
  Company Number: DE-ROCHE-2745146

PATIENT
  Age: 57 Year
  Sex: Female
  Weight: 52.7 kg

DRUGS (29)
  1. ZOLEDRONIC ACID [Suspect]
     Active Substance: ZOLEDRONIC ACID
     Indication: Metastases to bone
     Dosage: Q28D (2ND DOSE 16/DEC/2020,3RD DOSE 13/JAN/2021)
     Route: 065
     Dates: start: 20201118
  2. ZOLEDRONIC ACID [Suspect]
     Active Substance: ZOLEDRONIC ACID
     Dosage: 4 MILLIGRAM
     Route: 065
     Dates: start: 20201216
  3. TRASTUZUMAB [Suspect]
     Active Substance: TRASTUZUMAB
     Indication: Breast cancer
     Dosage: AST DOSE APPLICATION PRIOR EVENT:10/DEC/2020
     Route: 042
     Dates: start: 20201210, end: 20210328
  4. TRASTUZUMAB [Suspect]
     Active Substance: TRASTUZUMAB
     Dosage: 336 MG(RECENT DOSE PRIOR AE 20/JUL/2021:326 MG)
     Route: 042
     Dates: start: 20210518, end: 20220608
  5. PERTUZUMAB [Suspect]
     Active Substance: PERTUZUMAB
     Indication: Breast cancer
     Dosage: LAST APPLICATION PRIOR EVENT: 10/DEC/2020)
     Route: 065
     Dates: start: 20201210, end: 20210328
  6. PERTUZUMAB [Suspect]
     Active Substance: PERTUZUMAB
     Dosage: RECENT DOSE DATE PRIOR TO AE 20/JUL/2021:420 MG
     Route: 065
     Dates: start: 20210518, end: 20220608
  7. DOCETAXEL [Suspect]
     Active Substance: DOCETAXEL
     Indication: Breast cancer
     Dosage: APPLICATION PRIOR EVENT 10/DEC/2020
     Route: 065
     Dates: start: 20201118, end: 20210104
  8. DEXAMETHASONE [Concomitant]
     Active Substance: DEXAMETHASONE
     Dosage: 32 MILLIGRAM
     Route: 048
     Dates: start: 20201117, end: 20210106
  9. DEXAMETHASONE [Concomitant]
     Active Substance: DEXAMETHASONE
     Dosage: 8 MILLIGRAM
     Route: 065
     Dates: start: 20201118, end: 20210104
  10. DEXAMETHASONE [Concomitant]
     Active Substance: DEXAMETHASONE
     Dosage: 08 MILLIGRAM
     Route: 065
     Dates: start: 20220930, end: 20221023
  11. DEXAMETHASONE [Concomitant]
     Active Substance: DEXAMETHASONE
     Dosage: 8 MILLIGRAM
     Route: 065
     Dates: end: 20220728
  12. DEXAMETHASONE [Concomitant]
     Active Substance: DEXAMETHASONE
     Dosage: 8 MILLIGRAM
     Route: 042
     Dates: start: 20201118, end: 20210104
  13. BISOPROLOL [Concomitant]
     Active Substance: BISOPROLOL
     Dosage: 2.5 MILLIGRAM, BID
     Route: 048
     Dates: start: 20210709
  14. CALCIUM\CHOLECALCIFEROL [Concomitant]
     Active Substance: CALCIUM\CHOLECALCIFEROL
     Dosage: CALCIUM 500 MG / VITAMIN D 400 IU DAILY
     Route: 048
     Dates: start: 20201118
  15. CALCIUM\CHOLECALCIFEROL [Concomitant]
     Active Substance: CALCIUM\CHOLECALCIFEROL
     Dosage: 400 INTERNATIONAL UNIT, QD
     Route: 048
     Dates: start: 20201118
  16. ELIQUIS [Concomitant]
     Active Substance: APIXABAN
     Dosage: 5 MILLIGRAM, BID (09-JUL-2021)
     Route: 048
     Dates: start: 20210709
  17. OMEPRAZOLE [Concomitant]
     Active Substance: OMEPRAZOLE
     Dosage: 20 MILLIGRAM (04-JAN-2021)
     Route: 048
     Dates: start: 20210104, end: 20210109
  18. Gynomunal [Concomitant]
     Dosage: 2.5 MILLIGRAM (08-FEB-2021)
     Route: 061
     Dates: start: 20210208, end: 20210222
  19. Novalgin [Concomitant]
     Dosage: 500 MILLIGRAM (04-JAN-2021)
     Route: 048
     Dates: start: 20210104, end: 20210109
  20. Bepanthen [Concomitant]
     Dosage: UNK, QD
     Route: 061
     Dates: start: 20210622
  21. DIMETHINDENE MALEATE [Concomitant]
     Active Substance: DIMETHINDENE MALEATE
     Dosage: 4 MILLIGRAM (18-NOV-2020)
     Route: 042
     Dates: start: 20201118, end: 20210104
  22. SEA SALT [Concomitant]
     Active Substance: SEA SALT
     Dosage: UNK, BID (26-OCT-2021)
     Route: 045
     Dates: start: 20211026
  23. GRANISETRON [Concomitant]
     Active Substance: GRANISETRON
     Dosage: 1 MILLIGRAM(PER CYCLE)
     Route: 065
     Dates: start: 20220728
  24. VITAMIN C [Concomitant]
     Active Substance: ASCORBIC ACID
     Dosage: UNK, QD
     Route: 065
     Dates: start: 20230116
  25. PANTOPRAZOLE [Concomitant]
     Active Substance: PANTOPRAZOLE
     Dosage: UNK
     Route: 065
  26. ZIEXTENZO [Concomitant]
     Active Substance: PEGFILGRASTIM-BMEZ
     Dosage: UNK
     Route: 065
  27. IBUPROFEN [Concomitant]
     Active Substance: IBUPROFEN
     Dosage: 600 MILLIGRAM, QD
     Route: 065
     Dates: start: 20221025, end: 20221025
  28. OMEGA 3 [Concomitant]
     Active Substance: CAPSAICIN
     Dosage: UNK, QD
     Route: 065
     Dates: start: 20221216
  29. ACETAMINOPHEN [Concomitant]
     Active Substance: ACETAMINOPHEN
     Dosage: 500 MILLIGRAM, QD
     Route: 065
     Dates: start: 20221024, end: 20221024

REACTIONS (12)
  - Atrial fibrillation [Recovered/Resolved]
  - Osteochondrosis [Not Recovered/Not Resolved]
  - Dry skin [Not Recovered/Not Resolved]
  - Vulvovaginal dryness [Recovered/Resolved]
  - Left ventricular dysfunction [Recovered/Resolved]
  - Dysgeusia [Recovered/Resolved]
  - Anaemia [Recovered/Resolved]
  - Back pain [Not Recovered/Not Resolved]
  - Abdominal pain upper [Recovered/Resolved]
  - Dizziness [Not Recovered/Not Resolved]
  - Chest pain [Not Recovered/Not Resolved]
  - Chest discomfort [Recovered/Resolved]

NARRATIVE: CASE EVENT DATE: 20201217
